FAERS Safety Report 8610652 (Version 3)
Quarter: 2012Q4

REPORT INFORMATION
  Report Type: 
  Country: US (occurrence: US)
  Receive Date: 20120612
  Receipt Date: 20121211
  Transmission Date: 20130627
  Serious: Yes (Hospitalization, Other)
  Sender: FDA-Public Use
  Company Number: US-ROCHE-1076590

PATIENT
  Sex: Female
  Weight: 86.26 kg

DRUGS (3)
  1. PEGASYS [Suspect]
     Indication: CHRONIC HEPATITIS C
     Route: 058
     Dates: start: 20120121, end: 20120818
  2. RIBAPAK [Suspect]
     Indication: CHRONIC HEPATITIS C
     Dosage: divided doses
     Route: 048
     Dates: start: 20120121, end: 20120818
  3. INCIVEK [Suspect]
     Indication: CHRONIC HEPATITIS C
     Route: 065
     Dates: start: 20120121, end: 20120407

REACTIONS (6)
  - Malnutrition [Unknown]
  - Blood potassium decreased [Unknown]
  - Weight decreased [Unknown]
  - Anaemia [Unknown]
  - Dehydration [Unknown]
  - Vocal cord thickening [Unknown]
